FAERS Safety Report 8614257-4 (Version None)
Quarter: 2012Q3

REPORT INFORMATION
  Report Type: 
  Country: None (occurrence: None)
  Receive Date: 20120823
  Receipt Date: 20120820
  Transmission Date: 20120928
  Serious: Yes (Life-Threatening, Hospitalization)
  Sender: FDA-Public Use
  Company Number: US-GENZYME-CLOF-1002210

PATIENT
  Sex: Female

DRUGS (7)
  1. PAXIL [Concomitant]
     Indication: PRODUCT USED FOR UNKNOWN INDICATION
     Dosage: 20 MG, QD
     Route: 048
  2. ASPIRIN [Concomitant]
     Indication: PRODUCT USED FOR UNKNOWN INDICATION
     Dosage: 81 MG, QD
     Route: 048
  3. COMPAZINE [Concomitant]
     Indication: PRODUCT USED FOR UNKNOWN INDICATION
     Dosage: UNK
     Route: 065
  4. CALCIUM D [Concomitant]
     Indication: PRODUCT USED FOR UNKNOWN INDICATION
     Dosage: 500MG ELEMENTARY CA/200IU VIT D, QD
     Route: 048
  5. MYCOLOG-II [Concomitant]
     Indication: PRODUCT USED FOR UNKNOWN INDICATION
     Dosage: 100000-0.1, BID
     Route: 061
  6. CLOFARABINE [Suspect]
     Indication: B-CELL LYMPHOMA
     Dosage: 3 MG, QD (ONCE DAILY ON DAYS 1-21 OF 28 DAY CYCLE)
     Route: 048
     Dates: start: 20120604, end: 20120626
  7. BACTRIM DS [Concomitant]
     Indication: INFECTION PROPHYLAXIS
     Dosage: MWF
     Route: 065

REACTIONS (10)
  - FEBRILE NEUTROPENIA [None]
  - PANCYTOPENIA [None]
  - FATIGUE [None]
  - TREMOR [None]
  - PAIN [None]
  - ANAEMIA [None]
  - UNEVALUABLE EVENT [None]
  - THROMBOCYTOPENIA [None]
  - DYSPNOEA EXERTIONAL [None]
  - WEIGHT DECREASED [None]
